FAERS Safety Report 13627997 (Version 1)
Quarter: 2017Q2

REPORT INFORMATION
  Report Type: Spontaneous
  Country: US (occurrence: US)
  Receive Date: 20170531
  Receipt Date: 20170531
  Transmission Date: 20170830
  Serious: Yes (Other)
  Sender: FDA-Public Use
  Company Number: US-ASTELLAS-1686000

PATIENT
  Age: 70 Year
  Sex: Female

DRUGS (4)
  1. TARCEVA [Suspect]
     Active Substance: ERLOTINIB HYDROCHLORIDE
     Indication: LUNG NEOPLASM MALIGNANT
     Route: 048
     Dates: start: 20151202
  2. RED CLOVER BLOSSOM [Concomitant]
  3. METHOTREXATE. [Concomitant]
     Active Substance: METHOTREXATE
  4. FISH OIL [Concomitant]
     Active Substance: FISH OIL

REACTIONS (10)
  - Gastrooesophageal reflux disease [Unknown]
  - Frequent bowel movements [Unknown]
  - Rash [Unknown]
  - Bowel movement irregularity [Unknown]
  - Pruritus [Unknown]
  - Lymphadenopathy [Unknown]
  - Infection [Unknown]
  - Haematochezia [Unknown]
  - Arthralgia [Unknown]
  - Urticaria [Unknown]

NARRATIVE: CASE EVENT DATE: 20151227
